FAERS Safety Report 11251183 (Version 1)
Quarter: 2015Q3

REPORT INFORMATION
  Report Type: Spontaneous
  Country: US (occurrence: US)
  Receive Date: 20150708
  Receipt Date: 20150708
  Transmission Date: 20151125
  Serious: No
  Sender: FDA-Public Use
  Company Number: US-ELI_LILLY_AND_COMPANY-US201109006174

PATIENT
  Sex: Male

DRUGS (2)
  1. TAXOL [Concomitant]
     Active Substance: PACLITAXEL
  2. GEMZAR [Suspect]
     Active Substance: GEMCITABINE HYDROCHLORIDE
     Indication: NON-SMALL CELL LUNG CANCER STAGE IV

REACTIONS (2)
  - Blood calcium increased [Unknown]
  - Drug resistance [Unknown]
